FAERS Safety Report 13286028 (Version 1)
Quarter: 2017Q1

REPORT INFORMATION
  Report Type: Spontaneous
  Country: GB (occurrence: GB)
  Receive Date: 20170301
  Receipt Date: 20170301
  Transmission Date: 20170428
  Serious: Yes (Hospitalization, Other)
  Sender: FDA-Public Use
  Company Number: GB-ALLERGAN-1707163US

PATIENT
  Age: 71 Year
  Sex: Male

DRUGS (1)
  1. ACULAR [Suspect]
     Active Substance: KETOROLAC TROMETHAMINE
     Indication: POSTOPERATIVE CARE
     Dosage: 3 GTT, QD
     Route: 047
     Dates: start: 20160704

REACTIONS (7)
  - Arteriosclerosis [Unknown]
  - Headache [Unknown]
  - Blood pressure increased [Unknown]
  - Cerebral amyloid angiopathy [Unknown]
  - Haemorrhage intracranial [Unknown]
  - Cataract [Unknown]
  - Off label use [Unknown]
